FAERS Safety Report 5921642-8 (Version None)
Quarter: 2008Q4

REPORT INFORMATION
  Report Type: 
  Country: None (occurrence: None)
  Receive Date: 20081016
  Receipt Date: 20081016
  Transmission Date: 20090506
  Serious: Yes (Hospitalization)
  Sender: FDA-Public Use
  Company Number: None

PATIENT
  Sex: Male
  Weight: 73.9363 kg

DRUGS (1)
  1. BETASERON [Suspect]
     Indication: MULTIPLE SCLEROSIS
     Dosage: 1 ML EVERY OTHER DAY SQ
     Route: 058

REACTIONS (2)
  - INJECTION SITE JOINT PAIN [None]
  - INJECTION SITE NERVE DAMAGE [None]
